FAERS Safety Report 23696268 (Version 1)
Quarter: 2024Q2

REPORT INFORMATION
  Report Type: Spontaneous
  Country: US (occurrence: None)
  Receive Date: 20240401
  Receipt Date: 20240401
  Transmission Date: 20240716
  Serious: No
  Sender: FDA-Public Use
  Company Number: None

PATIENT
  Sex: Female

DRUGS (11)
  1. ENBREL [Suspect]
     Active Substance: ETANERCEPT
     Indication: Rheumatoid arthritis
     Dosage: OTHER QUANTITY : INJECT 1 PEN;?FREQUENCY : WEEKLY;?
     Route: 058
     Dates: start: 20200811
  2. BACLOFEN [Concomitant]
     Active Substance: BACLOFEN
  3. ENBREL SRCLK [Concomitant]
  4. GABAPENTIN [Concomitant]
     Active Substance: GABAPENTIN
  5. ACETAMINOPHEN\HYDROCODONE [Concomitant]
     Active Substance: ACETAMINOPHEN\HYDROCODONE
  6. HYDROXYZINE HYDROCHLORIDE [Concomitant]
     Active Substance: HYDROXYZINE HYDROCHLORIDE
  7. HYSINGLA ER [Concomitant]
     Active Substance: HYDROCODONE BITARTRATE
  8. LOVASTATIN [Concomitant]
     Active Substance: LOVASTATIN
  9. MELOXICAM [Concomitant]
     Active Substance: MELOXICAM
  10. METHOCARBAMOL [Concomitant]
     Active Substance: METHOCARBAMOL
  11. MORPHINE SULFATE [Concomitant]
     Active Substance: MORPHINE SULFATE

REACTIONS (1)
  - Pneumonia [None]
